FAERS Safety Report 5614061-5 (Version None)
Quarter: 2008Q1

REPORT INFORMATION
  Report Type: 
  Country: None (occurrence: None)
  Receive Date: 20080205
  Receipt Date: 20080128
  Transmission Date: 20080703
  Serious: Yes (Other)
  Sender: FDA-Public Use
  Company Number: GB-ABBOTT-08P-167-0435795-00

PATIENT
  Age: 54 Year
  Sex: Female

DRUGS (4)
  1. VALPROATE SODIUM [Suspect]
     Indication: DRUG USE FOR UNKNOWN INDICATION
  2. CLOBAZAM [Interacting]
     Indication: DRUG USE FOR UNKNOWN INDICATION
  3. INSULIN INITARD NORDISK [Interacting]
     Indication: DRUG USE FOR UNKNOWN INDICATION
  4. SIMVASTATIN [Interacting]
     Indication: DRUG USE FOR UNKNOWN INDICATION
     Route: 048
     Dates: start: 20061201

REACTIONS (2)
  - CONVULSION [None]
  - DRUG INTERACTION [None]
